FAERS Safety Report 9215127 (Version 1)
Quarter: 2013Q2

REPORT INFORMATION
  Report Type: Spontaneous
  Country: JP (occurrence: JP)
  Receive Date: 20130405
  Receipt Date: 20130405
  Transmission Date: 20140414
  Serious: Yes (Other)
  Sender: FDA-Public Use
  Company Number: PHHY2013JP031996

PATIENT
  Sex: Male

DRUGS (2)
  1. VOLTAREN [Suspect]
     Indication: PAIN
     Dosage: 50 MG, UNK
     Route: 054
  2. VOLTAREN [Suspect]
     Dosage: 350 MG, QD
     Route: 054

REACTIONS (10)
  - Paresis anal sphincter [Unknown]
  - Myocardial infarction [Unknown]
  - Asthenia [Unknown]
  - Abdominal pain [Unknown]
  - Dizziness [Unknown]
  - Tremor [Unknown]
  - Drug hypersensitivity [Unknown]
  - Dermatitis contact [Unknown]
  - Drug prescribing error [Unknown]
  - Overdose [Unknown]
